FAERS Safety Report 5895046-0 (Version None)
Quarter: 2008Q3

REPORT INFORMATION
  Report Type: 
  Country: None (occurrence: None)
  Receive Date: 20080924
  Receipt Date: 20080911
  Transmission Date: 20090109
  Serious: Yes (Death, Other)
  Sender: FDA-Public Use
  Company Number: US-PFIZER INC-2008054541

PATIENT
  Sex: Male
  Weight: 89.8 kg

DRUGS (2)
  1. SUTENT [Suspect]
     Indication: METASTATIC RENAL CELL CARCINOMA
     Dosage: DAILY DOSE:50MG-FREQ:ONCE A DAY
     Dates: start: 20080401, end: 20080602
  2. CORTICOSTEROID NOS [Concomitant]

REACTIONS (9)
  - ASTHENIA [None]
  - DEATH [None]
  - HYPERGLYCAEMIA [None]
  - LETHARGY [None]
  - MULTI-ORGAN FAILURE [None]
  - PANCYTOPENIA [None]
  - PNEUMONIA [None]
  - SEPSIS [None]
  - SWELLING [None]
